FAERS Safety Report 14985525 (Version 1)
Quarter: 2018Q2

REPORT INFORMATION
  Report Type: Spontaneous
  Country: US (occurrence: US)
  Receive Date: 20180607
  Receipt Date: 20180607
  Transmission Date: 20180711
  Serious: No
  Sender: FDA-Public Use
  Company Number: PHEH2018US022213

PATIENT
  Age: 79 Year
  Sex: Male

DRUGS (1)
  1. VOTRIENT [Suspect]
     Active Substance: PAZOPANIB HYDROCHLORIDE
     Indication: RENAL CANCER
     Dosage: 600 MG, QD (BEFORE NOON)
     Route: 048
     Dates: start: 201712

REACTIONS (5)
  - Blood creatinine increased [Unknown]
  - Fatigue [Unknown]
  - Nausea [Unknown]
  - Glomerular filtration rate decreased [Unknown]
  - Dysgeusia [Unknown]

NARRATIVE: CASE EVENT DATE: 20180426
